FAERS Safety Report 5230187-2 (Version None)
Quarter: 2007Q1

REPORT INFORMATION
  Report Type: 
  Country: None (occurrence: None)
  Receive Date: 20070206
  Receipt Date: 20060926
  Transmission Date: 20070707
  Serious: No
  Sender: FDA-Public Use
  Company Number: US-GLAXOSMITHKLINE-A0621454A

PATIENT
  Age: 38 Year
  Sex: Female

DRUGS (1)
  1. PAXIL CR [Suspect]
     Indication: PANIC DISORDER
     Dosage: 37.5TAB PER DAY
     Route: 048
     Dates: end: 20060831

REACTIONS (3)
  - FATIGUE [None]
  - NAUSEA [None]
  - PANIC REACTION [None]
